FAERS Safety Report 22287604 (Version 1)
Quarter: 2023Q2

REPORT INFORMATION
  Report Type: Spontaneous
  Country: CN (occurrence: None)
  Receive Date: 20230505
  Receipt Date: 20230505
  Transmission Date: 20230722
  Serious: Yes (Other)
  Sender: FDA-Public Use
  Company Number: 2023A100812

PATIENT
  Age: 68 Year
  Sex: Male
  Weight: 120 kg

DRUGS (2)
  1. IMFINZI [Suspect]
     Active Substance: DURVALUMAB
     Indication: Small cell lung cancer extensive stage
     Dosage: 1500.0MG EVERY CYCLE
     Dates: start: 20211223, end: 20211223
  2. ETOPOSIDE [Concomitant]
     Active Substance: ETOPOSIDE
     Indication: Small cell lung cancer extensive stage

REACTIONS (2)
  - Myocardial infarction [Unknown]
  - Atrial fibrillation [Unknown]
